FAERS Safety Report 10206784 (Version 1)
Quarter: 2014Q2

REPORT INFORMATION
  Report Type: Spontaneous
  Country: NO (occurrence: NO)
  Receive Date: 20140530
  Receipt Date: 20140530
  Transmission Date: 20141212
  Serious: Yes (Other)
  Sender: FDA-Public Use
  Company Number: NO-PFIZER INC-2014145684

PATIENT
  Age: 41 Year
  Sex: Male

DRUGS (1)
  1. LYRICA [Suspect]
     Indication: PAIN
     Dosage: 225 MG, 3X/DAY
     Route: 048

REACTIONS (1)
  - Drug abuse [Unknown]
